FAERS Safety Report 24046254 (Version 1)
Quarter: 2024Q3

REPORT INFORMATION
  Report Type: Spontaneous
  Country: US (occurrence: None)
  Receive Date: 20240703
  Receipt Date: 20240703
  Transmission Date: 20241017
  Serious: Yes (Hospitalization)
  Sender: Public
  Company Number: None

PATIENT
  Age: 68 Year
  Sex: Male
  Weight: 77.6 kg

DRUGS (4)
  1. CISPLATIN [Suspect]
     Active Substance: CISPLATIN
     Dates: end: 20240618
  2. DOXORUBICIN HYDROCHLORIDE [Suspect]
     Active Substance: DOXORUBICIN HYDROCHLORIDE
     Dates: end: 20240618
  3. METHOTREXATE [Suspect]
     Active Substance: METHOTREXATE
     Dates: end: 20240618
  4. VINBLASTINE SULFATE [Suspect]
     Active Substance: VINBLASTINE SULFATE
     Dates: end: 20240618

REACTIONS (5)
  - Febrile neutropenia [None]
  - Oropharyngeal pain [None]
  - Dysphagia [None]
  - Asthenia [None]
  - Dehydration [None]

NARRATIVE: CASE EVENT DATE: 20240627
